FAERS Safety Report 7212667-3 (Version None)
Quarter: 2011Q1

REPORT INFORMATION
  Report Type: 
  Country: None (occurrence: None)
  Receive Date: 20110106
  Receipt Date: 20110103
  Transmission Date: 20110831
  Serious: Yes (Other)
  Sender: FDA-Public Use
  Company Number: US-JNJFOC-20110100993

PATIENT
  Sex: Male
  Weight: 95.26 kg

DRUGS (6)
  1. FENTANYL-100 [Suspect]
     Route: 062
  2. FENTANYL-100 [Suspect]
     Indication: INTERVERTEBRAL DISC DEGENERATION
     Route: 062
  3. PERCOCET [Concomitant]
     Indication: BREAKTHROUGH PAIN
     Dosage: 1-2
     Route: 048
  4. LISINOPRIL [Concomitant]
     Indication: BLOOD PRESSURE
  5. OMEPRAZOLE [Concomitant]
     Route: 048
  6. FENTANYL-100 [Suspect]
     Route: 062

REACTIONS (4)
  - BLINDNESS TRANSIENT [None]
  - MALAISE [None]
  - NAUSEA [None]
  - DIZZINESS [None]
